FAERS Safety Report 10565951 (Version 3)
Quarter: 2015Q3

REPORT INFORMATION
  Report Type: Report from Study
  Country: FR (occurrence: FR)
  Receive Date: 20141105
  Receipt Date: 20150817
  Transmission Date: 20151125
  Serious: Yes (Life-Threatening, Hospitalization)
  Sender: FDA-Public Use
  Company Number: PHHO2014FR014401

PATIENT
  Age: 64 Year
  Sex: Male
  Weight: 89 kg

DRUGS (4)
  1. AMN107 [Suspect]
     Active Substance: NILOTINIB
     Indication: ACUTE LYMPHOCYTIC LEUKAEMIA
     Dosage: 400 MG, BID
     Route: 048
     Dates: start: 20131221, end: 20140603
  2. AMN107 [Suspect]
     Active Substance: NILOTINIB
     Dosage: 400 MG, BID
     Route: 048
     Dates: start: 20140610, end: 20140801
  3. ARACYTINE [Suspect]
     Active Substance: CYTARABINE
     Indication: ACUTE LEUKAEMIA
     Dosage: 2000 MG, BID
     Route: 042
     Dates: start: 20140716
  4. AMN107 [Suspect]
     Active Substance: NILOTINIB
     Dosage: 400 MG, BID
     Route: 048
     Dates: start: 20140812

REACTIONS (2)
  - Septic shock [Recovered/Resolved]
  - Prostatitis [Recovered/Resolved]

NARRATIVE: CASE EVENT DATE: 20140726
